FAERS Safety Report 7288460-2 (Version None)
Quarter: 2011Q1

REPORT INFORMATION
  Report Type: 
  Country: None (occurrence: None)
  Receive Date: 20110211
  Receipt Date: 20110203
  Transmission Date: 20110831
  Serious: Yes (Other)
  Sender: FDA-Public Use
  Company Number: B0696400A

PATIENT
  Sex: Female

DRUGS (3)
  1. ZYBAN [Suspect]
     Indication: DEPRESSION
     Dosage: 300MG PER DAY
     Route: 048
     Dates: start: 20080428, end: 20090924
  2. EMCONCOR [Concomitant]
  3. DURBIS [Concomitant]

REACTIONS (1)
  - CARDIOMYOPATHY [None]
